FAERS Safety Report 9764482 (Version 1)
Quarter: 2013Q4

REPORT INFORMATION
  Report Type: Spontaneous
  Country: BR (occurrence: BR)
  Receive Date: 20131217
  Receipt Date: 20131217
  Transmission Date: 20140711
  Serious: Yes (Hospitalization, Other)
  Sender: FDA-Public Use
  Company Number: BR-JNJFOC-20131208308

PATIENT
  Sex: Female
  Weight: 53 kg

DRUGS (3)
  1. IMOSEC [Suspect]
     Indication: DIARRHOEA
     Route: 065
     Dates: start: 2005
  2. CHLOROQUINE [Concomitant]
     Indication: RHEUMATOID ARTHRITIS
     Route: 065
  3. METHOTREXATE [Concomitant]
     Indication: RHEUMATOID ARTHRITIS
     Route: 065

REACTIONS (8)
  - Cervix carcinoma [Recovered/Resolved]
  - Thrombosis [Not Recovered/Not Resolved]
  - Weight decreased [Unknown]
  - Vaginal obstruction [Not Recovered/Not Resolved]
  - Drug ineffective [Unknown]
  - Diarrhoea [Not Recovered/Not Resolved]
  - Sciatica [Unknown]
  - Self-medication [Unknown]
